FAERS Safety Report 4318278-1 (Version None)
Quarter: 2004Q1

REPORT INFORMATION
  Report Type: 
  Country: None (occurrence: None)
  Receive Date: 20040312
  Receipt Date: 20040303
  Transmission Date: 20041129
  Serious: Yes (Disabling)
  Sender: FDA-Public Use
  Company Number: HQ6296622JAN2003

PATIENT
  Age: 15 Year
  Sex: Male

DRUGS (1)
  1. ROBITUSSIN CF [Suspect]
     Dosage: ORAL
     Route: 048
     Dates: start: 19931030

REACTIONS (3)
  - ANEURYSM [None]
  - CEREBROVASCULAR ACCIDENT [None]
  - CONVULSION [None]
